FAERS Safety Report 5358136-7 (Version None)
Quarter: 2007Q2

REPORT INFORMATION
  Report Type: 
  Country: None (occurrence: None)
  Receive Date: 20070530
  Receipt Date: 20061025
  Transmission Date: 20071010
  Serious: Yes (Hospitalization)
  Sender: FDA-Public Use
  Company Number: US200605006486

PATIENT
  Age: 54 Year
  Sex: Male
  Weight: 111.6 kg

DRUGS (1)
  1. ZYPREXA [Suspect]
     Dosage: 20 MG

REACTIONS (1)
  - DIABETES MELLITUS [None]
